FAERS Safety Report 4482014-9 (Version None)
Quarter: 2004Q4

REPORT INFORMATION
  Report Type: 
  Country: None (occurrence: None)
  Receive Date: 20041020
  Receipt Date: 20041020
  Transmission Date: 20050328
  Serious: Yes (Hospitalization)
  Sender: FDA-Public Use
  Company Number: None

PATIENT
  Age: 65 Year
  Sex: Female

DRUGS (6)
  1. BENAZEPRIL HCL [Suspect]
     Indication: HYPERTENSION
  2. BENAZEPRIL HCL [Concomitant]
  3. LOTENSIN [Concomitant]
  4. RANITIDINE [Concomitant]
  5. ZANTAC [Concomitant]
  6. HYDROCHLOROTHIAZIDE [Concomitant]

REACTIONS (2)
  - SWELLING [None]
  - SWOLLEN TONGUE [None]
